FAERS Safety Report 13776247 (Version 1)
Quarter: 2017Q3

REPORT INFORMATION
  Report Type: Spontaneous
  Country: MX (occurrence: MX)
  Receive Date: 20170720
  Receipt Date: 20170720
  Transmission Date: 20171127
  Serious: Yes (Other)
  Sender: FDA-Public Use
  Company Number: MX-BAYER-2017-133952

PATIENT
  Sex: Female
  Weight: 1.85 kg

DRUGS (4)
  1. NADROPARIN [Suspect]
     Active Substance: NADROPARIN
     Dosage: 0.6 ML, QD
     Route: 064
     Dates: start: 2009
  2. ACETYLSALICYLIC ACID({=100 MG) [Suspect]
     Active Substance: ASPIRIN
     Dosage: AT THE 6TH WEEK OF GESTATION
     Route: 064
     Dates: start: 2009
  3. HYDROXYCHLOROQUINE [Suspect]
     Active Substance: HYDROXYCHLOROQUINE
     Dosage: 200 MG, QD
     Route: 064
  4. PREDNISONE. [Suspect]
     Active Substance: PREDNISONE
     Dosage: 5 MG, QD
     Route: 064

REACTIONS (3)
  - Premature baby [None]
  - Foetal exposure during pregnancy [None]
  - Low birth weight baby [None]

NARRATIVE: CASE EVENT DATE: 2009
